FAERS Safety Report 4421594-6 (Version None)
Quarter: 2004Q3

REPORT INFORMATION
  Report Type: 
  Country: None (occurrence: None)
  Receive Date: 20040804
  Receipt Date: 20040713
  Transmission Date: 20050211
  Serious: Yes (Hospitalization)
  Sender: FDA-Public Use
  Company Number: USA040772508

PATIENT
  Age: 33 Year
  Sex: Female

DRUGS (1)
  1. HUMALOG [Suspect]
     Dosage: 4 U HOUR

REACTIONS (5)
  - ASTHENIA [None]
  - DIABETIC KETOACIDOSIS [None]
  - INFLUENZA [None]
  - PHARMACEUTICAL PRODUCT COMPLAINT [None]
  - WHITE BLOOD CELL COUNT DECREASED [None]
